FAERS Safety Report 6370793-5 (Version None)
Quarter: 2009Q3

REPORT INFORMATION
  Report Type: 
  Country: None (occurrence: None)
  Receive Date: 20090923
  Receipt Date: 20070607
  Transmission Date: 20100115
  Serious: Yes (Hospitalization, Disabling, Other)
  Sender: FDA-Public Use
  Company Number: US-ASTRAZENECA-2006UW23744

PATIENT
  Age: 16766 Day
  Sex: Female
  Weight: 83 kg

DRUGS (9)
  1. SEROQUEL [Suspect]
     Indication: SLEEP DISORDER
     Dosage: 100 MG - 400 MG
     Route: 048
     Dates: start: 20020729
  2. PREDNISONE [Concomitant]
     Dosage: 05 MG - 10 MG
     Dates: start: 20030218
  3. AVAPRO [Concomitant]
     Dates: start: 20030125
  4. ALBUTEROL [Concomitant]
     Dates: start: 20050311
  5. GLIPIZIDE [Concomitant]
     Dates: start: 20050525
  6. GLYBURIDE [Concomitant]
  7. POTASSIUM CHLORIDE [Concomitant]
     Dosage: 10 - 40 MEQ
     Dates: start: 20050725
  8. ANUSOL SUPPOSITORIES [Concomitant]
     Indication: HAEMORRHOIDS
     Dates: start: 20060124
  9. RESTORIL [Concomitant]
     Indication: SLEEP APNOEA SYNDROME
     Dates: start: 20060124

REACTIONS (4)
  - DIABETES MELLITUS [None]
  - DIABETES MELLITUS INADEQUATE CONTROL [None]
  - PANCREATITIS [None]
  - TYPE 2 DIABETES MELLITUS [None]
